FAERS Safety Report 18427282 (Version 1)
Quarter: 2020Q4

REPORT INFORMATION
  Report Type: Spontaneous
  Country: US (occurrence: US)
  Receive Date: 20201026
  Receipt Date: 20201026
  Transmission Date: 20210114
  Serious: Yes (Other)
  Sender: FDA-Public Use
  Company Number: US-PROCTER+GAMBLE-GS20119821

PATIENT
  Age: 4 Year
  Sex: Female

DRUGS (1)
  1. VICKS VAPORUB [Suspect]
     Active Substance: CAMPHOR (SYNTHETIC)\EUCALYPTUS OIL\MENTHOL
     Route: 048

REACTIONS (12)
  - Toxicity to various agents [Unknown]
  - Unresponsive to stimuli [Recovered/Resolved]
  - Bruxism [Unknown]
  - Seizure [Recovered/Resolved]
  - Vomiting [Unknown]
  - Mental status changes [Recovered/Resolved]
  - Accidental exposure to product by child [Unknown]
  - Exposure via ingestion [Unknown]
  - Heart rate increased [Unknown]
  - Abnormal behaviour [Unknown]
  - Postictal state [Unknown]
  - Lethargy [Recovered/Resolved]
